FAERS Safety Report 7029559-5 (Version None)
Quarter: 2010Q4

REPORT INFORMATION
  Report Type: 
  Country: None (occurrence: None)
  Receive Date: 20101005
  Receipt Date: 20100927
  Transmission Date: 20110411
  Serious: Yes (Other)
  Sender: FDA-Public Use
  Company Number: FR-GILEAD-2010-0032191

PATIENT
  Sex: Female

DRUGS (2)
  1. HEPSERA [Suspect]
     Indication: HEPATITIS B
  2. VIREAD [Suspect]
     Indication: HEPATITIS B

REACTIONS (5)
  - APATHY [None]
  - APHASIA [None]
  - HEADACHE [None]
  - OCULAR DISCOMFORT [None]
  - PAIN [None]
